FAERS Safety Report 13556862 (Version 1)
Quarter: 2017Q2

REPORT INFORMATION
  Report Type: Spontaneous
  Country: US (occurrence: US)
  Receive Date: 20170517
  Receipt Date: 20170517
  Transmission Date: 20170830
  Serious: Yes (Other)
  Sender: FDA-Public Use
  Company Number: None

PATIENT
  Age: 80 Year
  Sex: Male

DRUGS (1)
  1. ACIPHEX [Suspect]
     Active Substance: RABEPRAZOLE SODIUM
     Indication: HYPERCHOLESTEROLAEMIA

REACTIONS (8)
  - Productive cough [None]
  - Hypoxia [None]
  - Ageusia [None]
  - Anosmia [None]
  - Deafness [None]
  - Weight decreased [None]
  - Bronchiectasis [None]
  - Rhinorrhoea [None]
